FAERS Safety Report 10920256 (Version 1)
Quarter: 2015Q1

REPORT INFORMATION
  Report Type: Spontaneous
  Country: FR (occurrence: FR)
  Receive Date: 20150317
  Receipt Date: 20150317
  Transmission Date: 20150721
  Serious: Yes (Hospitalization)
  Sender: FDA-Public Use
  Company Number: FR-ASTRAZENECA-2015SE23064

PATIENT
  Age: 3725 Week
  Sex: Female

DRUGS (11)
  1. MOCLAMINE [Suspect]
     Active Substance: MOCLOBEMIDE
     Route: 048
  2. TAHOR [Concomitant]
     Active Substance: ATORVASTATIN CALCIUM
  3. MOCLAMINE [Suspect]
     Active Substance: MOCLOBEMIDE
     Route: 048
     Dates: start: 201501
  4. GLICLAZIDE [Concomitant]
     Active Substance: GLICLAZIDE
  5. LAROXYL [Suspect]
     Active Substance: AMITRIPTYLINE
     Route: 065
  6. COTARED [Concomitant]
     Dosage: 160MG/25MG
  7. XEROQUEL [Suspect]
     Active Substance: QUETIAPINE FUMARATE
     Route: 048
     Dates: start: 201501, end: 20150223
  8. SERESTA [Concomitant]
     Active Substance: OXAZEPAM
  9. KARDEGIC [Concomitant]
     Active Substance: ASPIRIN LYSINE
  10. STRUCTOFLEX [Concomitant]
     Active Substance: GLUCOSAMINE
  11. GLUCOPHAGE [Concomitant]
     Active Substance: METFORMIN HYDROCHLORIDE

REACTIONS (9)
  - Mutism [Recovering/Resolving]
  - Extrapyramidal disorder [Recovering/Resolving]
  - Hypertonia [Recovered/Resolved]
  - Tachycardia [Recovering/Resolving]
  - Dehydration [Recovering/Resolving]
  - Neuroleptic malignant syndrome [Recovering/Resolving]
  - Trismus [Recovering/Resolving]
  - Hyperhidrosis [Recovering/Resolving]
  - Anuria [Recovering/Resolving]

NARRATIVE: CASE EVENT DATE: 20150223
